FAERS Safety Report 5062164-9 (Version None)
Quarter: 2006Q3

REPORT INFORMATION
  Report Type: 
  Country: None (occurrence: None)
  Receive Date: 20060703
  Receipt Date: 20051011
  Transmission Date: 20061208
  Serious: No
  Sender: FDA-Public Use
  Company Number: 2005S1010064

PATIENT
  Age: 28 Year
  Sex: Female

DRUGS (8)
  1. CLOZAPINE [Suspect]
     Indication: SCHIZOPHRENIA
     Dosage: 300 MG;BID;ORAL
     Route: 048
  2. LANSOPRAZOLE [Concomitant]
  3. CLONAZEPAM [Concomitant]
  4. POTASSIUM CHLORIDE [Concomitant]
  5. TEGASEROD [Concomitant]
  6. RISPERIDONE [Concomitant]
  7. PHENYTOIN [Concomitant]
  8. RANITIDINE [Concomitant]

REACTIONS (1)
  - GRANULOCYTOPENIA [None]
